FAERS Safety Report 11820243 (Version 5)
Quarter: 2017Q3

REPORT INFORMATION
  Report Type: Report from Study
  Country: CA (occurrence: CA)
  Receive Date: 20151210
  Receipt Date: 20170711
  Transmission Date: 20171127
  Serious: Yes (Other)
  Sender: FDA-Public Use
  Company Number: CA-ROCHE-1640776

PATIENT
  Age: 69 Year
  Sex: Male

DRUGS (14)
  1. ROSUVASTATIN. [Concomitant]
     Active Substance: ROSUVASTATIN
     Indication: MYOCARDIAL ISCHAEMIA
     Route: 065
  2. CHONDROITIN [Concomitant]
     Active Substance: CHONDROITIN
  3. ACETYLSALICYLIC ACID [Concomitant]
     Active Substance: ASPIRIN
  4. KRILL OIL [Concomitant]
     Active Substance: DIETARY SUPPLEMENT
  5. ESBRIET [Suspect]
     Active Substance: PIRFENIDONE
     Route: 048
     Dates: start: 20150916
  6. ACUPRIL [Concomitant]
     Active Substance: QUINAPRIL HYDROCHLORIDE
  7. TECTA [Concomitant]
     Active Substance: PANTOPRAZOLE MAGNESIUM
  8. COENZYME Q10 COMPLEX (UNK INGREDIENTS) [Concomitant]
  9. CITALOPRAM [Concomitant]
     Active Substance: CITALOPRAM HYDROBROMIDE
  10. PANTOPRAZOLE [Concomitant]
     Active Substance: PANTOPRAZOLE
     Route: 065
  11. ASPIRIN. [Concomitant]
     Active Substance: ASPIRIN
     Indication: MYOCARDIAL ISCHAEMIA
  12. QUINAPRIL. [Concomitant]
     Active Substance: QUINAPRIL
     Indication: MYOCARDIAL ISCHAEMIA
     Route: 065
  13. ESBRIET [Suspect]
     Active Substance: PIRFENIDONE
     Indication: IDIOPATHIC PULMONARY FIBROSIS
     Route: 048
     Dates: start: 20150909
  14. ESBRIET [Suspect]
     Active Substance: PIRFENIDONE
     Route: 048
     Dates: start: 20150923

REACTIONS (21)
  - Carbon monoxide diffusing capacity decreased [Recovered/Resolved]
  - Arteriosclerosis coronary artery [Unknown]
  - Nasopharyngitis [Not Recovered/Not Resolved]
  - Rash [Unknown]
  - Dyspnoea [Unknown]
  - Fatigue [Unknown]
  - Cough [Unknown]
  - Respiratory tract infection [Unknown]
  - Aortic calcification [Unknown]
  - Pain [Unknown]
  - Allergic sinusitis [Unknown]
  - Expiratory reserve volume decreased [Unknown]
  - Pulmonary mass [Unknown]
  - Initial insomnia [Not Recovered/Not Resolved]
  - Chronic obstructive pulmonary disease [Unknown]
  - Abdominal distension [Not Recovered/Not Resolved]
  - Aspartate aminotransferase increased [Unknown]
  - Blood glucose increased [Not Recovered/Not Resolved]
  - Diarrhoea [Unknown]
  - Dyspepsia [Unknown]
  - Forced vital capacity decreased [Unknown]

NARRATIVE: CASE EVENT DATE: 20150909
